FAERS Safety Report 7943091-3 (Version None)
Quarter: 2011Q4

REPORT INFORMATION
  Report Type: 
  Country: None (occurrence: None)
  Receive Date: 20111128
  Receipt Date: 20111114
  Transmission Date: 20120403
  Serious: Yes (Hospitalization, Other)
  Sender: FDA-Public Use
  Company Number: PHHY2011DE100182

PATIENT
  Sex: Female

DRUGS (2)
  1. MYFORTIC [Suspect]
     Dosage: UNK UKN, UNK
  2. CYCLOSPORINE [Suspect]
     Indication: IMMUNOSUPPRESSION
     Dosage: UNK UKN, UNK

REACTIONS (8)
  - HEPATITIS E [None]
  - GAMMA-GLUTAMYLTRANSFERASE INCREASED [None]
  - BLOOD ALBUMIN INCREASED [None]
  - BLOOD ALKALINE PHOSPHATASE INCREASED [None]
  - ASPARTATE AMINOTRANSFERASE INCREASED [None]
  - CHOLANGITIS [None]
  - DRUG INTOLERANCE [None]
  - TRANSAMINASES INCREASED [None]
